FAERS Safety Report 25202631 (Version 2)
Quarter: 2025Q2

REPORT INFORMATION
  Report Type: Spontaneous
  Country: US (occurrence: US)
  Receive Date: 20250416
  Receipt Date: 20250425
  Transmission Date: 20250716
  Serious: Yes (Hospitalization, Other)
  Sender: TEVA
  Company Number: US-TEVA-VS-3319868

PATIENT
  Age: 4 Year
  Sex: Male

DRUGS (9)
  1. METHOTREXATE [Suspect]
     Active Substance: METHOTREXATE
     Indication: B-cell type acute leukaemia
     Route: 065
  2. NIVOLUMAB [Suspect]
     Active Substance: NIVOLUMAB
     Indication: Histiocytic sarcoma
     Route: 042
  3. NIVOLUMAB [Suspect]
     Active Substance: NIVOLUMAB
     Indication: Histiocytic sarcoma
     Route: 042
  4. NIVOLUMAB [Suspect]
     Active Substance: NIVOLUMAB
     Indication: Histiocytic sarcoma
     Dosage: FOR 3 WEEKS WITH A 1 WEEK DRUG HOLIDAY
     Route: 065
  5. CLOFARABINE [Suspect]
     Active Substance: CLOFARABINE
     Indication: Histiocytic sarcoma
     Dosage: FOR 5 DAYS
     Route: 065
  6. PREDNISONE [Suspect]
     Active Substance: PREDNISONE
     Indication: Histiocytic sarcoma
     Route: 065
  7. PREDNISONE [Suspect]
     Active Substance: PREDNISONE
     Indication: Histiocytic sarcoma
     Route: 065
  8. IPILIMUMAB [Suspect]
     Active Substance: IPILIMUMAB
     Indication: Histiocytic sarcoma
     Route: 042
  9. IPILIMUMAB [Suspect]
     Active Substance: IPILIMUMAB
     Indication: Histiocytic sarcoma
     Route: 042

REACTIONS (11)
  - Acute kidney injury [Recovered/Resolved]
  - Weight decreased [Unknown]
  - Vomiting [Unknown]
  - Infection [Recovered/Resolved]
  - Decreased appetite [Unknown]
  - Drug intolerance [Unknown]
  - Nausea [Unknown]
  - Bacteraemia [Recovered/Resolved]
  - Venoocclusive disease [Recovered/Resolved]
  - Pancytopenia [Unknown]
  - Malnutrition [Unknown]
